FAERS Safety Report 9482238 (Version 1)
Quarter: 2013Q3

REPORT INFORMATION
  Report Type: Spontaneous
  Country: US (occurrence: US)
  Receive Date: 20130828
  Receipt Date: 20130828
  Transmission Date: 20140515
  Serious: Yes (Death, Hospitalization)
  Sender: FDA-Public Use
  Company Number: US-SANOFI-AVENTIS-2013SA085134

PATIENT
  Age: 56 Year
  Sex: Male

DRUGS (11)
  1. FLUOROURACIL [Suspect]
     Indication: SQUAMOUS CELL CARCINOMA
     Route: 065
  2. CISPLATIN [Suspect]
     Indication: SQUAMOUS CELL CARCINOMA
     Route: 065
  3. TAXOTERE [Suspect]
     Indication: SQUAMOUS CELL CARCINOMA
     Route: 065
  4. HYDRALAZINE [Concomitant]
  5. FUROSEMIDE [Concomitant]
  6. LEVOTHYROXINE [Concomitant]
  7. LISINOPRIL [Concomitant]
  8. HYDROCHLOROTHIAZIDE [Concomitant]
  9. METOPROLOL [Concomitant]
  10. ATORVASTATIN [Concomitant]
  11. AMIODARONE [Concomitant]

REACTIONS (13)
  - Histiocytosis haematophagic [Fatal]
  - Pyrexia [Fatal]
  - Lethargy [Fatal]
  - Pancytopenia [Fatal]
  - Hypofibrinogenaemia [Fatal]
  - Hypertriglyceridaemia [Fatal]
  - Serum ferritin increased [Fatal]
  - Splenomegaly [Fatal]
  - Shock [Fatal]
  - Altered state of consciousness [Fatal]
  - Acute respiratory distress syndrome [Fatal]
  - Multi-organ failure [Fatal]
  - Product used for unknown indication [Unknown]
